FAERS Safety Report 23976768 (Version 1)
Quarter: 2024Q2

REPORT INFORMATION
  Report Type: Report from Study
  Country: US (occurrence: US)
  Receive Date: 20240614
  Receipt Date: 20240614
  Transmission Date: 20240716
  Serious: Yes (Hospitalization, Other)
  Sender: FDA-Public Use
  Company Number: US-SEATTLE GENETICS-2024SGN01252

PATIENT
  Age: 60 Year
  Sex: Female

DRUGS (8)
  1. TUCATINIB [Suspect]
     Active Substance: TUCATINIB
     Indication: Breast cancer female
     Dosage: UNK
     Route: 065
  2. TUCATINIB [Suspect]
     Active Substance: TUCATINIB
     Dosage: UNK
     Route: 065
  3. TUCATINIB [Suspect]
     Active Substance: TUCATINIB
     Dosage: UNK
     Route: 065
  4. TUCATINIB [Suspect]
     Active Substance: TUCATINIB
     Dosage: UNK
     Route: 065
  5. TUCATINIB [Suspect]
     Active Substance: TUCATINIB
     Dosage: 200MG PO (PER ORAL) EVERY 12 HOURS
     Route: 048
     Dates: start: 20221012
  6. TUCATINIB [Suspect]
     Active Substance: TUCATINIB
     Dosage: 200MG PO (PER ORAL) EVERY 12 HOURS
     Route: 048
     Dates: start: 20221012
  7. TUKYSA [Suspect]
     Active Substance: TUCATINIB
     Dosage: 200MG PO (PER ORAL) EVERY 12 HOURS
     Route: 048
     Dates: start: 20221012
  8. TUKYSA [Suspect]
     Active Substance: TUCATINIB
     Dosage: 200MG PO (PER ORAL) EVERY 12 HOURS
     Route: 048
     Dates: start: 20221012

REACTIONS (20)
  - Intestinal obstruction [Recovered/Resolved]
  - Neuropathy peripheral [Unknown]
  - Polyp [Unknown]
  - Vomiting [Not Recovered/Not Resolved]
  - Fatigue [Not Recovered/Not Resolved]
  - Drug hypersensitivity [Unknown]
  - Food allergy [Unknown]
  - Blood iron abnormal [Unknown]
  - Bone marrow disorder [Unknown]
  - Bone disorder [Unknown]
  - Speech disorder [Unknown]
  - Sinusitis [Not Recovered/Not Resolved]
  - Ear disorder [Not Recovered/Not Resolved]
  - Eye discharge [Not Recovered/Not Resolved]
  - Blood calcium decreased [Not Recovered/Not Resolved]
  - Blood potassium decreased [Not Recovered/Not Resolved]
  - Loss of personal independence in daily activities [Not Recovered/Not Resolved]
  - Temperature intolerance [Not Recovered/Not Resolved]
  - Product dose omission issue [Not Recovered/Not Resolved]
  - Product dose omission in error [Unknown]

NARRATIVE: CASE EVENT DATE: 20240221
